FAERS Safety Report 12602360 (Version 1)
Quarter: 2016Q3

REPORT INFORMATION
  Report Type: Spontaneous
  Country: US (occurrence: None)
  Receive Date: 20160727
  Receipt Date: 20160727
  Transmission Date: 20161109
  Serious: No
  Sender: FDA-Public Use
  Company Number: None

PATIENT
  Age: 64 Year
  Sex: Female
  Weight: 91.17 kg

DRUGS (1)
  1. ZOLPIDEM 12.5MG [Suspect]
     Active Substance: ZOLPIDEM TARTRATE
     Indication: INSOMNIA
     Dosage: 12.5MG 1 TAB AT H.S. BY MOUTH
     Route: 048
     Dates: start: 20141029

REACTIONS (1)
  - Drug ineffective [None]
